FAERS Safety Report 8889011 (Version 1)
Quarter: 2012Q4

REPORT INFORMATION
  Report Type: 
  Country: FR (occurrence: FR)
  Receive Date: 20121106
  Receipt Date: 20121106
  Transmission Date: 20130627
  Serious: Yes (Hospitalization, Other)
  Sender: FDA-Public Use
  Company Number: FR-BRISTOL-MYERS SQUIBB COMPANY-17079484

PATIENT
  Age: 66 Year
  Sex: Male

DRUGS (6)
  1. COUMADINE [Suspect]
     Indication: THROMBOSIS
     Route: 048
     Dates: start: 2010, end: 20120711
  2. LOVENOX [Suspect]
     Route: 048
     Dates: start: 20120709, end: 20120711
  3. KARDEGIC [Suspect]
     Indication: EMBOLISM
     Route: 048
     Dates: start: 2010, end: 20120711
  4. CARDENSIEL [Concomitant]
     Indication: CARDIAC FAILURE CHRONIC
     Dosage: For last 2 years.
     Route: 048
  5. KEPPRA [Concomitant]
     Indication: MYOCLONUS
     Dosage: For last 2 years.
     Route: 048
  6. EUPANTOL [Concomitant]
     Dosage: For last 2 years.
     Route: 048

REACTIONS (3)
  - Rectal haemorrhage [Recovered/Resolved]
  - Anaemia [Not Recovered/Not Resolved]
  - Gastrointestinal tract adenoma [Unknown]
